FAERS Safety Report 6885301-X (Version None)
Quarter: 2010Q3

REPORT INFORMATION
  Report Type: 
  Country: None (occurrence: None)
  Receive Date: 20100729
  Receipt Date: 20100729
  Transmission Date: 20110219
  Serious: Yes (Hospitalization)
  Sender: FDA-Public Use
  Company Number: None

PATIENT
  Age: 59 Year
  Sex: Male

DRUGS (1)
  1. NEOSTIGMINE [Suspect]
     Indication: INTESTINAL FUNCTIONAL DISORDER
     Dosage: 1 MG ONCE IV
     Route: 042
     Dates: start: 20100715, end: 20100715

REACTIONS (1)
  - TACHYCARDIA [None]
